FAERS Safety Report 8962299 (Version 1)
Quarter: 2012Q4

REPORT INFORMATION
  Report Type: Spontaneous
  Country: US (occurrence: None)
  Receive Date: 20121204
  Receipt Date: 20121204
  Transmission Date: 20130627
  Serious: No
  Sender: FDA-Public Use
  Company Number: 2012-00192

PATIENT
  Sex: Female

DRUGS (1)
  1. ZICAM [Suspect]

REACTIONS (1)
  - Anosmia [None]
